FAERS Safety Report 7099962-6 (Version None)
Quarter: 2010Q4

REPORT INFORMATION
  Report Type: 
  Country: None (occurrence: None)
  Receive Date: 20101112
  Receipt Date: 20101102
  Transmission Date: 20110411
  Serious: Yes (Other)
  Sender: FDA-Public Use
  Company Number: US-BAYER-200940035NA

PATIENT
  Age: 54 Year
  Sex: Female

DRUGS (12)
  1. MAGNEVIST [Suspect]
     Indication: NUCLEAR MAGNETIC RESONANCE IMAGING
     Dates: start: 20020924, end: 20020924
  2. MAGNEVIST [Suspect]
     Dates: start: 20041015, end: 20041015
  3. COUMADIN [Concomitant]
  4. EPOGEN [Concomitant]
  5. PROCRIT [Concomitant]
  6. RENAGEL [Concomitant]
     Indication: RENAL DISORDER
     Dates: start: 19970101
  7. PREMPRO [Concomitant]
  8. ALLOPURINOL [Concomitant]
  9. METOPROLOL SUCCINATE [Concomitant]
  10. IMDUR [Concomitant]
  11. FERROUS SULFATE [Concomitant]
  12. SENSIPAR [Concomitant]

REACTIONS (24)
  - ARTHROPATHY [None]
  - DEFORMITY [None]
  - GAIT DISTURBANCE [None]
  - HYPOAESTHESIA [None]
  - INDURATION [None]
  - MITRAL VALVE DISEASE [None]
  - MOBILITY DECREASED [None]
  - MUSCLE TIGHTNESS [None]
  - MUSCULAR WEAKNESS [None]
  - MUSCULOSKELETAL STIFFNESS [None]
  - NEPHROGENIC SYSTEMIC FIBROSIS [None]
  - OEDEMA PERIPHERAL [None]
  - PAIN [None]
  - PAIN IN EXTREMITY [None]
  - PRURITUS GENERALISED [None]
  - PULMONARY FIBROSIS [None]
  - RASH PAPULAR [None]
  - SKIN DISCOLOURATION [None]
  - SKIN FIBROSIS [None]
  - SKIN HYPERPIGMENTATION [None]
  - SKIN HYPERTROPHY [None]
  - SKIN INDURATION [None]
  - SKIN PLAQUE [None]
  - SKIN TIGHTNESS [None]
